FAERS Safety Report 4840509-X (Version None)
Quarter: 2005Q4

REPORT INFORMATION
  Report Type: 
  Country: None (occurrence: None)
  Receive Date: 20051130
  Receipt Date: 20050830
  Transmission Date: 20060501
  Serious: Yes (Hospitalization)
  Sender: FDA-Public Use
  Company Number: US-BRISTOL-MYERS SQUIBB COMPANY-13095948

PATIENT
  Sex: Female

DRUGS (2)
  1. ERBITUX [Suspect]
     Route: 042
     Dates: start: 20050801, end: 20050801
  2. FLUOROURACIL [Concomitant]

REACTIONS (1)
  - HYPERSENSITIVITY [None]
